FAERS Safety Report 6931629-4 (Version None)
Quarter: 2010Q3

REPORT INFORMATION
  Report Type: 
  Country: None (occurrence: None)
  Receive Date: 20100813
  Receipt Date: 20100524
  Transmission Date: 20110219
  Serious: Yes (Other)
  Sender: FDA-Public Use
  Company Number: 1000014052

PATIENT
  Age: 35 Year
  Sex: Female

DRUGS (14)
  1. SAVELLA [Suspect]
     Indication: ARTHRITIS
     Dosage: 12.5 MG (12.5 MG, 1 IN 1 D), ORAL 25 MG (12.5 MG, 2 IN 1 D), ORAL
     Route: 048
     Dates: start: 20100327, end: 20100327
  2. SAVELLA [Suspect]
     Indication: DEPRESSION
     Dosage: 12.5 MG (12.5 MG, 1 IN 1 D), ORAL 25 MG (12.5 MG, 2 IN 1 D), ORAL
     Route: 048
     Dates: start: 20100327, end: 20100327
  3. SAVELLA [Suspect]
     Indication: PAIN
     Dosage: 12.5 MG (12.5 MG, 1 IN 1 D), ORAL 25 MG (12.5 MG, 2 IN 1 D), ORAL
     Route: 048
     Dates: start: 20100327, end: 20100327
  4. SAVELLA [Suspect]
     Indication: ARTHRITIS
     Dosage: 12.5 MG (12.5 MG, 1 IN 1 D), ORAL 25 MG (12.5 MG, 2 IN 1 D), ORAL
     Route: 048
     Dates: start: 20100328, end: 20100329
  5. SAVELLA [Suspect]
     Indication: DEPRESSION
     Dosage: 12.5 MG (12.5 MG, 1 IN 1 D), ORAL 25 MG (12.5 MG, 2 IN 1 D), ORAL
     Route: 048
     Dates: start: 20100328, end: 20100329
  6. SAVELLA [Suspect]
     Indication: PAIN
     Dosage: 12.5 MG (12.5 MG, 1 IN 1 D), ORAL 25 MG (12.5 MG, 2 IN 1 D), ORAL
     Route: 048
     Dates: start: 20100328, end: 20100329
  7. SAVELLA [Suspect]
     Indication: ARTHRITIS
     Dosage: 50 MG (25 MG, 2 IN 1 D), ORAL
     Route: 048
     Dates: start: 20100330, end: 20100330
  8. SAVELLA [Suspect]
     Indication: DEPRESSION
     Dosage: 50 MG (25 MG, 2 IN 1 D), ORAL
     Route: 048
     Dates: start: 20100330, end: 20100330
  9. SAVELLA [Suspect]
     Indication: PAIN
     Dosage: 50 MG (25 MG, 2 IN 1 D), ORAL
     Route: 048
     Dates: start: 20100330, end: 20100330
  10. WELLBUTRIN [Concomitant]
  11. SYNTHROID [Concomitant]
  12. ESTRADIOL [Concomitant]
  13. MULTI-VITAMINS [Concomitant]
  14. CALCIUM [Concomitant]

REACTIONS (9)
  - BLOOD PRESSURE INCREASED [None]
  - DEHYDRATION [None]
  - DIARRHOEA [None]
  - DIZZINESS [None]
  - HEART RATE INCREASED [None]
  - INFLUENZA LIKE ILLNESS [None]
  - NAUSEA [None]
  - PYREXIA [None]
  - VOMITING [None]
